FAERS Safety Report 18195749 (Version 1)
Quarter: 2020Q3

REPORT INFORMATION
  Report Type: Spontaneous
  Country: US (occurrence: US)
  Receive Date: 20200825
  Receipt Date: 20200825
  Transmission Date: 20201103
  Serious: Yes (Other)
  Sender: FDA-Public Use
  Company Number: US-ASTRAZENECA-2020SF04892

PATIENT
  Age: 59 Year
  Sex: Male

DRUGS (1)
  1. SEROQUEL [Suspect]
     Active Substance: QUETIAPINE FUMARATE
     Route: 048

REACTIONS (9)
  - General physical health deterioration [Unknown]
  - Accidental overdose [Unknown]
  - Muscular weakness [Unknown]
  - Constipation [Unknown]
  - Unresponsive to stimuli [Unknown]
  - Hypersomnia [Unknown]
  - Nerve compression [Unknown]
  - Intestinal obstruction [Unknown]
  - Gait inability [Unknown]
